FAERS Safety Report 13757049 (Version 15)
Quarter: 2019Q2

REPORT INFORMATION
  Report Type: Report from Study
  Country: JP (occurrence: JP)
  Receive Date: 20170715
  Receipt Date: 20190523
  Transmission Date: 20190711
  Serious: Yes (Hospitalization, Other)
  Sender: FDA-Public Use
  Company Number: JP-AMGEN-JPNCT2017089658

PATIENT
  Age: 71 Year
  Sex: Female
  Weight: 39.7 kg

DRUGS (33)
  1. CALCIUM LEVOFOLINATE [Suspect]
     Active Substance: LEVOLEUCOVORIN CALCIUM
     Indication: METASTASES TO LIVER
     Dosage: UNK, Q2WK
     Route: 041
     Dates: start: 20170803, end: 20170803
  2. RETINOL [Concomitant]
     Active Substance: RETINOL
     Indication: DRY SKIN PROPHYLAXIS
     Dosage: UNK
     Route: 062
     Dates: start: 20170420
  3. SAHNE [Concomitant]
     Indication: DRY SKIN PROPHYLAXIS
     Dosage: UNK
     Route: 062
     Dates: start: 20170420
  4. OXALIPLATIN. [Suspect]
     Active Substance: OXALIPLATIN
     Indication: METASTASES TO LIVER
     Dosage: 66 MILLIGRAM/SQ. METER, Q2WK
     Route: 041
     Dates: start: 20170803, end: 20170803
  5. MINOCYCLINE HYDROCHLORIDE. [Concomitant]
     Active Substance: MINOCYCLINE HYDROCHLORIDE
     Indication: SKIN DISORDER
     Dosage: 100 MILLIGRAM, BID
     Route: 048
     Dates: start: 20170420
  6. PANITUMUMAB [Suspect]
     Active Substance: PANITUMUMAB
     Dosage: 4.7 MILLIGRAM/KILOGRAM, Q2WK
     Route: 041
     Dates: start: 20171012, end: 20171109
  7. FLUOROURACIL. [Suspect]
     Active Substance: FLUOROURACIL
     Indication: METASTASES TO LIVER
     Dosage: 3250 MILLIGRAM, Q2WK
     Route: 041
     Dates: start: 20170420, end: 20170622
  8. FLUOROURACIL. [Suspect]
     Active Substance: FLUOROURACIL
     Dosage: 317 MILLIGRAM/SQ. METER, Q2WK
     Route: 040
     Dates: start: 20170831, end: 20170831
  9. FLUOROURACIL. [Suspect]
     Active Substance: FLUOROURACIL
     Dosage: 317 MILLIGRAM/SQ. METER, Q2WK
     Route: 040
     Dates: start: 20171012, end: 20171109
  10. FLUOROURACIL. [Suspect]
     Active Substance: FLUOROURACIL
     Dosage: UNK
     Route: 042
     Dates: start: 20180307
  11. WHITE SOFT PARAFFIN [Concomitant]
     Active Substance: PARAFFIN
     Indication: DRY SKIN PROPHYLAXIS
     Dosage: UNK
     Route: 062
     Dates: start: 20170420
  12. DAIKENCHUTO [Concomitant]
     Active Substance: HERBALS
     Indication: ABDOMINAL DISTENSION
     Dosage: 1 DOSAGE FORM, TID
     Route: 048
     Dates: start: 20170408
  13. OXALIPLATIN. [Suspect]
     Active Substance: OXALIPLATIN
     Indication: COLON CANCER
     Dosage: 115 MILLIGRAM, Q2WK
     Route: 041
     Dates: start: 20170420, end: 20170622
  14. OXALIPLATIN. [Suspect]
     Active Substance: OXALIPLATIN
     Dosage: 66 MILLIGRAM/SQ. METER, Q2WK
     Route: 041
     Dates: start: 20171012, end: 20171109
  15. CALCIUM LEVOFOLINATE [Suspect]
     Active Substance: LEVOLEUCOVORIN CALCIUM
     Dosage: UNK, Q2WK
     Route: 041
     Dates: start: 20171012, end: 20171109
  16. PANITUMUMAB [Suspect]
     Active Substance: PANITUMUMAB
     Indication: METASTASES TO LUNG
     Dosage: 4.7 MILLIGRAM/KILOGRAM, Q2WK
     Route: 041
     Dates: start: 20170831, end: 20170831
  17. CALCIUM LEVOFOLINATE [Suspect]
     Active Substance: LEVOLEUCOVORIN CALCIUM
     Indication: METASTASES TO LUNG
     Dosage: UNK, Q2WK
     Route: 041
     Dates: start: 20170831, end: 20170831
  18. MUCOPOLYSACCHARIDE POLYSULFURIC ACID ESTER [Concomitant]
     Indication: DRY SKIN PROPHYLAXIS
     Dosage: UNK
     Route: 062
     Dates: start: 20170420
  19. BESOFTEN [Concomitant]
     Active Substance: PENTOSAN POLYSULFATE SODIUM
     Indication: DRY SKIN PROPHYLAXIS
     Dosage: UNK
     Route: 062
     Dates: start: 20170420
  20. LOCOID [Concomitant]
     Active Substance: HYDROCORTISONE BUTYRATE
     Indication: DERMATITIS
     Dosage: UNK, BID
     Route: 062
     Dates: start: 20170420
  21. PANITUMUMAB [Suspect]
     Active Substance: PANITUMUMAB
     Indication: COLON CANCER
     Dosage: 250 MILLIGRAM, Q2WK
     Route: 041
     Dates: start: 20170420, end: 20170622
  22. CALCIUM LEVOFOLINATE [Suspect]
     Active Substance: LEVOLEUCOVORIN CALCIUM
     Indication: COLON CANCER
     Dosage: 275 MILLIGRAM, Q2WK
     Route: 041
     Dates: start: 20170420, end: 20170622
  23. FLUOROURACIL. [Suspect]
     Active Substance: FLUOROURACIL
     Dosage: 1917 MILLIGRAM/SQ. METER, Q2WK
     Route: 041
     Dates: start: 20170803, end: 20170803
  24. FLUOROURACIL. [Suspect]
     Active Substance: FLUOROURACIL
     Dosage: 1917 MILLIGRAM/SQ. METER, Q2WK
     Route: 041
     Dates: start: 20170831, end: 20170831
  25. PANAX GINSENG ROOT W/ZANTHOXYLUM PIPERITUM PE [Concomitant]
     Indication: ABDOMINAL DISTENSION
     Dosage: 1 DOSAGE FORM, TID
     Route: 048
     Dates: start: 20170408
  26. DIFLUPREDNATE [Concomitant]
     Active Substance: DIFLUPREDNATE
     Indication: DERMATITIS
     Dosage: UNK, BID
     Route: 062
     Dates: start: 20170420
  27. MINOMYCIN [Concomitant]
     Active Substance: MINOCYCLINE HYDROCHLORIDE
     Indication: SKIN DISORDER
     Dosage: 100 MILLIGRAM, BID
     Route: 048
     Dates: start: 20170420
  28. OXALIPLATIN. [Suspect]
     Active Substance: OXALIPLATIN
     Indication: METASTASES TO LUNG
     Dosage: 66 MILLIGRAM/SQ. METER, Q2WK
     Route: 041
     Dates: start: 20170831, end: 20170831
  29. FLUOROURACIL. [Suspect]
     Active Substance: FLUOROURACIL
     Indication: METASTASES TO LUNG
     Dosage: 317 MILLIGRAM/SQ. METER, Q2WK
     Route: 040
     Dates: start: 20170803, end: 20170803
  30. PANITUMUMAB [Suspect]
     Active Substance: PANITUMUMAB
     Indication: METASTASES TO LIVER
     Dosage: 4.7 MILLIGRAM/KILOGRAM, Q2WK
     Route: 041
     Dates: start: 20170803, end: 20170803
  31. FLUOROURACIL. [Suspect]
     Active Substance: FLUOROURACIL
     Indication: COLON CANCER
     Dosage: 540 MILLIGRAM, Q2WK
     Route: 040
     Dates: start: 20170420, end: 20170622
  32. FLUOROURACIL. [Suspect]
     Active Substance: FLUOROURACIL
     Dosage: 1917 UNK, Q2WK
     Route: 041
     Dates: start: 20171012, end: 20171109
  33. HYDROCORTISONE BUTYRATE. [Concomitant]
     Active Substance: HYDROCORTISONE BUTYRATE
     Indication: DERMATITIS
     Dosage: UNK, BID
     Route: 062
     Dates: start: 20170420

REACTIONS (29)
  - Dysgeusia [Recovered/Resolved]
  - Dermatitis acneiform [Recovered/Resolved]
  - Vomiting [Recovered/Resolved]
  - Peripheral motor neuropathy [Not Recovered/Not Resolved]
  - Oedema peripheral [Not Recovered/Not Resolved]
  - Nail disorder [Recovered/Resolved]
  - Dry skin [Recovered/Resolved]
  - Diarrhoea [Recovered/Resolved]
  - Malaise [Recovered/Resolved]
  - Pigmentation disorder [Recovered/Resolved]
  - Oedema [Recovered/Resolved]
  - Palmar-plantar erythrodysaesthesia syndrome [Not Recovered/Not Resolved]
  - Decreased appetite [Recovered/Resolved]
  - Pigmentation disorder [Not Recovered/Not Resolved]
  - Pruritus [Recovered/Resolved]
  - Decreased appetite [Recovered/Resolved]
  - Stoma site inflammation [Recovered/Resolved]
  - Embolism [Not Recovered/Not Resolved]
  - Dysgeusia [Recovered/Resolved]
  - Photosensitivity reaction [Recovered/Resolved]
  - Peripheral sensory neuropathy [Not Recovered/Not Resolved]
  - Constipation [Recovered/Resolved]
  - Stomatitis [Not Recovered/Not Resolved]
  - Pain of skin [Recovered/Resolved]
  - Decubitus ulcer [Recovered/Resolved]
  - Paronychia [Not Recovered/Not Resolved]
  - Nail disorder [Recovered/Resolved]
  - Stomatitis [Recovered/Resolved]
  - Nausea [Recovered/Resolved]
